FAERS Safety Report 20464491 (Version 1)
Quarter: 2022Q1

REPORT INFORMATION
  Report Type: Spontaneous
  Country: US (occurrence: US)
  Receive Date: 20220211
  Receipt Date: 20220211
  Transmission Date: 20220423
  Serious: Yes (Other)
  Sender: FDA-Public Use
  Company Number: US-NOVARTISPH-NVSC2022US032000

PATIENT
  Age: 61 Year
  Sex: Female

DRUGS (12)
  1. RANITIDINE [Suspect]
     Active Substance: RANITIDINE
     Dosage: 300 MG,,DAILY,
     Route: 048
     Dates: start: 200301, end: 201903
  2. RANITIDINE [Suspect]
     Active Substance: RANITIDINE
     Indication: Dyspepsia
  3. RANITIDINE [Suspect]
     Active Substance: RANITIDINE
     Indication: Erosive oesophagitis
  4. RANITIDINE [Suspect]
     Active Substance: RANITIDINE
     Indication: Gastrooesophageal reflux disease
  5. RANITIDINE [Suspect]
     Active Substance: RANITIDINE
     Indication: Hiatus hernia
  6. RANITIDINE [Suspect]
     Active Substance: RANITIDINE
     Indication: Hyperchlorhydria
  7. RANITIDINE [Suspect]
     Active Substance: RANITIDINE
     Dosage: 300 MG,,DAILY,
     Route: 048
     Dates: start: 200301, end: 201903
  8. RANITIDINE [Suspect]
     Active Substance: RANITIDINE
     Indication: Dyspepsia
  9. RANITIDINE [Suspect]
     Active Substance: RANITIDINE
     Indication: Erosive oesophagitis
  10. RANITIDINE [Suspect]
     Active Substance: RANITIDINE
     Indication: Gastrooesophageal reflux disease
  11. RANITIDINE [Suspect]
     Active Substance: RANITIDINE
     Indication: Hiatus hernia
  12. RANITIDINE [Suspect]
     Active Substance: RANITIDINE
     Indication: Hyperchlorhydria

REACTIONS (1)
  - Breast cancer [Recovering/Resolving]

NARRATIVE: CASE EVENT DATE: 20151101
